FAERS Safety Report 23051520 (Version 1)
Quarter: 2023Q4

REPORT INFORMATION
  Report Type: Spontaneous
  Country: US (occurrence: US)
  Receive Date: 20231010
  Receipt Date: 20231010
  Transmission Date: 20240110
  Serious: No
  Sender: FDA-Public Use
  Company Number: US-Sprout Pharmaceuticals, Inc.-2022SP000258

PATIENT
  Age: 27 Year
  Sex: Female
  Weight: 77.18 kg

DRUGS (1)
  1. ADDYI [Suspect]
     Active Substance: FLIBANSERIN
     Indication: Sexual dysfunction
     Route: 048
     Dates: start: 20220829

REACTIONS (3)
  - Feeling abnormal [Unknown]
  - Dizziness [Recovering/Resolving]
  - Fatigue [Unknown]

NARRATIVE: CASE EVENT DATE: 20220829
